FAERS Safety Report 7012747-1 (Version None)
Quarter: 2010Q3

REPORT INFORMATION
  Report Type: 
  Country: None (occurrence: None)
  Receive Date: 20100924
  Receipt Date: 20100920
  Transmission Date: 20110219
  Serious: Yes (Hospitalization)
  Sender: FDA-Public Use
  Company Number: A0792116A

PATIENT
  Age: 51 Year
  Sex: Male

DRUGS (2)
  1. AVANDIA [Suspect]
     Dosage: 4MG TWICE PER DAY
     Route: 048
     Dates: start: 20000101, end: 20000501
  2. AVANDAMET [Suspect]
     Dosage: 1TAB PER DAY
     Dates: start: 20000501, end: 20020401

REACTIONS (1)
  - MYOCARDIAL INFARCTION [None]
